FAERS Safety Report 9563484 (Version 1)
Quarter: 2013Q1

REPORT INFORMATION
  Report Type: Spontaneous
  Country: US (occurrence: None)
  Receive Date: 20121218
  Receipt Date: 20121218
  Transmission Date: 20140127
  Serious: Yes (Other)
  Sender: FDA-Public Use
  Company Number: PHEH2012US007062

PATIENT
  Age: 81 Year
  Sex: Female

DRUGS (1)
  1. ZOMETA (ZOLEDRONATE) UNKNOWN [Suspect]
     Indication: OSTEOPOROSIS
     Dosage: 4 MG EVERY 3 MONTHS, INTRAVENOUS
     Route: 042
     Dates: start: 200702, end: 20100713

REACTIONS (5)
  - Neoplasm progression [None]
  - Fatigue [None]
  - Back pain [None]
  - Pain in extremity [None]
  - Neoplasm malignant [None]
